FAERS Safety Report 4804407-X (Version None)
Quarter: 2005Q4

REPORT INFORMATION
  Report Type: 
  Country: None (occurrence: None)
  Receive Date: 20051020
  Receipt Date: 20051017
  Transmission Date: 20060501
  Serious: Yes (Hospitalization)
  Sender: FDA-Public Use
  Company Number: US-GLAXOSMITHKLINE-A0578441A

PATIENT
  Age: 54 Year
  Sex: Male

DRUGS (3)
  1. EPZICOM [Suspect]
     Indication: HIV INFECTION
     Dosage: 1TAB PER DAY
     Route: 048
  2. NORVIR [Concomitant]
  3. REYATAZ [Concomitant]

REACTIONS (3)
  - DIARRHOEA [None]
  - DRUG ADMINISTRATION ERROR [None]
  - DRUG RESISTANCE [None]
